FAERS Safety Report 17215616 (Version 2)
Quarter: 2020Q2

REPORT INFORMATION
  Report Type: Spontaneous
  Country: DE (occurrence: DE)
  Receive Date: 20191230
  Receipt Date: 20200423
  Transmission Date: 20200713
  Serious: Yes (Death, Life-Threatening, Hospitalization, Other)
  Sender: FDA-Public Use
  Company Number: DE-BAUSCH-BL-2019-066105

PATIENT
  Sex: Female
  Weight: 52 kg

DRUGS (29)
  1. BENLYSTA [Suspect]
     Active Substance: BELIMUMAB
     Indication: WHITE BLOOD CELL COUNT DECREASED
     Route: 058
     Dates: start: 201806, end: 201807
  2. AZATHIOPRINE. [Suspect]
     Active Substance: AZATHIOPRINE
     Indication: SYSTEMIC LUPUS ERYTHEMATOSUS
     Route: 065
     Dates: start: 201906, end: 201907
  3. PREDNISOLONE. [Suspect]
     Active Substance: PREDNISOLONE
     Indication: SYSTEMIC LUPUS ERYTHEMATOSUS
     Route: 065
     Dates: start: 1988
  4. BENLYSTA [Suspect]
     Active Substance: BELIMUMAB
     Indication: SYSTEMIC LUPUS ERYTHEMATOSUS
     Route: 058
     Dates: start: 201711, end: 201812
  5. BENLYSTA [Suspect]
     Active Substance: BELIMUMAB
     Route: 058
     Dates: start: 201708, end: 201904
  6. QUENSYL [Concomitant]
     Active Substance: HYDROXYCHLOROQUINE
     Dates: start: 2008
  7. ANORO [Concomitant]
     Active Substance: UMECLIDINIUM BROMIDE\VILANTEROL TRIFENATATE
     Indication: PRODUCT USED FOR UNKNOWN INDICATION
     Dosage: UNKNOWN, 55/221 PUSH
     Route: 055
  8. DULOXETINE. [Concomitant]
     Active Substance: DULOXETINE
     Indication: PRODUCT USED FOR UNKNOWN INDICATION
     Dosage: QD 30 (1-0-0)
  9. DETRUSITOL [Suspect]
     Active Substance: TOLTERODINE TARTRATE
     Indication: SYSTEMIC LUPUS ERYTHEMATOSUS
     Route: 065
  10. EZETROL [Concomitant]
     Active Substance: EZETIMIBE
     Indication: PRODUCT USED FOR UNKNOWN INDICATION
     Dosage: QD 10 (0-0-1)
  11. LAXATAN [Concomitant]
     Indication: PRODUCT USED FOR UNKNOWN INDICATION
  12. AZATHIOPRINE. [Suspect]
     Active Substance: AZATHIOPRINE
     Indication: LYMPHOPENIA
     Route: 065
     Dates: start: 20100419, end: 201904
  13. MOLSIDOMIN [Suspect]
     Active Substance: MOLSIDOMINE
     Indication: SYSTEMIC LUPUS ERYTHEMATOSUS
     Dosage: UNKNOWN, UNKNOWN, QD 8 RET (0-0-1)
     Route: 065
  14. SEVREDOL [Suspect]
     Active Substance: MORPHINE
     Indication: SYSTEMIC LUPUS ERYTHEMATOSUS
     Dosage: 20 TO S5 X /D
     Route: 065
  15. MCP [Concomitant]
     Active Substance: METOCLOPRAMIDE HYDROCHLORIDE
     Indication: PRODUCT USED FOR UNKNOWN INDICATION
     Dosage: 10 (UNSPECIFIED)?DOSE: 3 (UNSPECIFIED UNITS)
  16. FLUVASTATIN [Suspect]
     Active Substance: FLUVASTATIN SODIUM
     Indication: SYSTEMIC LUPUS ERYTHEMATOSUS
     Dosage: UNKNOWN, UNKNOWN, QD 20 (0-0-1)
     Route: 065
  17. PENTACARINAT [Suspect]
     Active Substance: PENTAMIDINE ISETHIONATE
     Indication: SYSTEMIC LUPUS ERYTHEMATOSUS
     Route: 055
     Dates: start: 201904
  18. LEVOTHYROXIN [Suspect]
     Active Substance: LEVOTHYROXINE
     Indication: PRODUCT USED FOR UNKNOWN INDICATION
     Route: 065
  19. ISDN [Concomitant]
     Indication: PRODUCT USED FOR UNKNOWN INDICATION
     Dosage: BID 20 RET (1-1-0
  20. QUENSYL [Concomitant]
     Active Substance: HYDROXYCHLOROQUINE
     Indication: PRODUCT USED FOR UNKNOWN INDICATION
     Dates: start: 1994, end: 1997
  21. MORPHIN [Concomitant]
     Active Substance: MORPHINE
     Indication: PRODUCT USED FOR UNKNOWN INDICATION
     Dosage: BID 30 RET (1-0-1
  22. ACYCLOVIR. [Suspect]
     Active Substance: ACYCLOVIR
     Indication: SYSTEMIC LUPUS ERYTHEMATOSUS
     Route: 065
  23. AZATHIOPRINE. [Suspect]
     Active Substance: AZATHIOPRINE
     Indication: WHITE BLOOD CELL COUNT DECREASED
     Route: 065
     Dates: start: 1997, end: 2008
  24. VALSARTAN. [Suspect]
     Active Substance: VALSARTAN
     Indication: SYSTEMIC LUPUS ERYTHEMATOSUS
     Dosage: UNK UNK, BID 160 (1-0-1)
     Route: 065
  25. ELIQUIS [Suspect]
     Active Substance: APIXABAN
     Indication: SYSTEMIC LUPUS ERYTHEMATOSUS
     Route: 065
  26. BAYOTENSIN [Concomitant]
     Active Substance: NITRENDIPINE
     Indication: PRODUCT USED FOR UNKNOWN INDICATION
  27. SAB SIMPLEX [Concomitant]
     Indication: PRODUCT USED FOR UNKNOWN INDICATION
     Dosage: UNKNOWN, 30 GTT TO 3X/D
  28. DEKRISTOL [Concomitant]
     Active Substance: CHOLECALCIFEROL
     Indication: PRODUCT USED FOR UNKNOWN INDICATION
     Dosage: UNKNOWN, UNKNOWN, WE, 20000
  29. L-THYROX [Concomitant]
     Active Substance: LEVOTHYROXINE SODIUM
     Indication: PRODUCT USED FOR UNKNOWN INDICATION
     Dosage: QD 50 (1-0-0)

REACTIONS (28)
  - Sepsis [Fatal]
  - Herpes simplex reactivation [Unknown]
  - Drug hypersensitivity [Unknown]
  - Pleuritic pain [Unknown]
  - Erysipelas [Unknown]
  - Thrombocytopenia [Unknown]
  - Fall [Unknown]
  - Anxiety disorder [Unknown]
  - Peritonitis [Fatal]
  - Pneumocystis jirovecii pneumonia [Fatal]
  - Coombs positive haemolytic anaemia [Unknown]
  - Complex regional pain syndrome [Unknown]
  - Depression [Unknown]
  - Gastritis haemorrhagic [Unknown]
  - Antiphospholipid syndrome [Unknown]
  - Gastrooesophageal reflux disease [Unknown]
  - Systemic lupus erythematosus [Unknown]
  - Lymphopenia [Fatal]
  - Leukopenia [Unknown]
  - Hyperlipidaemia [Unknown]
  - Colitis ulcerative [Unknown]
  - Pancreatitis acute [Unknown]
  - Hypothyroidism [Unknown]
  - Osteonecrosis [Unknown]
  - Urinary tract infection [Unknown]
  - Hypertension [Unknown]
  - Skin disorder [Unknown]
  - Antinuclear antibody negative [Unknown]

NARRATIVE: CASE EVENT DATE: 1990
